FAERS Safety Report 4348372-0 (Version None)
Quarter: 2004Q2

REPORT INFORMATION
  Report Type: 
  Country: None (occurrence: None)
  Receive Date: 20040427
  Receipt Date: 20040325
  Transmission Date: 20050107
  Serious: Yes (Other)
  Sender: FDA-Public Use
  Company Number: PHFR2004GB01618

PATIENT
  Age: 32 Year
  Sex: Female

DRUGS (3)
  1. VOLTAREN-XR [Suspect]
     Indication: BRONCHITIS
     Dosage: 100MG/DAY
     Route: 065
  2. CARBAMAZEPINE [Concomitant]
     Route: 065
  3. CLONIDINE HCL [Concomitant]
     Route: 065

REACTIONS (7)
  - BLINDNESS [None]
  - ENCEPHALITIS [None]
  - HEMIANOPIA HOMONYMOUS [None]
  - OPTIC PATHWAY INJURY [None]
  - PERSEVERATION [None]
  - VISION BLURRED [None]
  - VISUAL ACUITY REDUCED [None]
